FAERS Safety Report 20988069 (Version 1)
Quarter: 2022Q2

REPORT INFORMATION
  Report Type: Spontaneous
  Country: US (occurrence: None)
  Receive Date: 20220620
  Receipt Date: 20220620
  Transmission Date: 20220720
  Serious: Yes (Hospitalization)
  Sender: FDA-Public Use
  Company Number: None

PATIENT
  Sex: Female

DRUGS (2)
  1. MYCOPHENOLATE MOFETIL [Suspect]
     Active Substance: MYCOPHENOLATE MOFETIL
     Indication: Systemic scleroderma
     Dosage: TAKE 2 TABLETS BY MOUTH IN THE MORNING AND TAKE 3 TABLETS IN THE EVENING?
     Route: 048
     Dates: start: 202107
  2. MYCOPHENOLATE MOFETIL [Suspect]
     Active Substance: MYCOPHENOLATE MOFETIL
     Dosage: OTHER FREQUENCY : 3  IN EVENING;?
     Route: 048
     Dates: start: 202107

REACTIONS (1)
  - Hospitalisation [None]
